FAERS Safety Report 4790970-4 (Version None)
Quarter: 2005Q4

REPORT INFORMATION
  Report Type: 
  Country: None (occurrence: None)
  Receive Date: 20051005
  Receipt Date: 20050921
  Transmission Date: 20060501
  Serious: Yes (Hospitalization, Other)
  Sender: FDA-Public Use
  Company Number: USA0509108806

PATIENT
  Age: 23 Year
  Sex: Male

DRUGS (6)
  1. CYMBALTA [Suspect]
     Indication: DEPRESSION
     Dates: end: 20050919
  2. LEXAPRO [Concomitant]
  3. VICODIN [Concomitant]
  4. CYCLOBENZAPRINE HCL [Concomitant]
  5. DICLOFENAC SODIUM [Concomitant]
  6. VITAMINS [Concomitant]

REACTIONS (6)
  - AGGRESSION [None]
  - CRYING [None]
  - DEPRESSION [None]
  - ECONOMIC PROBLEM [None]
  - INTENTIONAL SELF-INJURY [None]
  - SUICIDE ATTEMPT [None]
